FAERS Safety Report 5609041-X (Version None)
Quarter: 2008Q1

REPORT INFORMATION
  Report Type: 
  Country: None (occurrence: None)
  Receive Date: 20080131
  Receipt Date: 20080117
  Transmission Date: 20080703
  Serious: Yes (Other)
  Sender: FDA-Public Use
  Company Number: US-AMGEN-QUU257764

PATIENT
  Sex: Male
  Weight: 94 kg

DRUGS (5)
  1. ENBREL [Suspect]
     Indication: RHEUMATOID ARTHRITIS
     Route: 030
     Dates: start: 20030915, end: 20070802
  2. UNSPECIFIED NON-STEROIDAL ANTI-INFLAMMATORY AGENT [Concomitant]
  3. CELEBREX [Concomitant]
  4. TYLENOL [Concomitant]
  5. NASONEX [Concomitant]

REACTIONS (4)
  - DEMYELINATION [None]
  - HEMIPARESIS [None]
  - HYPERTENSION [None]
  - MULTIPLE SCLEROSIS [None]
